FAERS Safety Report 8534782-4 (Version None)
Quarter: 2012Q3

REPORT INFORMATION
  Report Type: 
  Country: None (occurrence: None)
  Receive Date: 20120724
  Receipt Date: 20120712
  Transmission Date: 20120928
  Serious: Yes (Other)
  Sender: FDA-Public Use
  Company Number: US-BAXTER-2012BAX011497

PATIENT
  Sex: Male

DRUGS (1)
  1. GAMMAGARD LIQUID [Suspect]
     Dosage: THOUGHT IT WAS AROUND 2G/KG/MONTH
     Route: 065

REACTIONS (1)
  - PROTEIN TOTAL ABNORMAL [None]
